FAERS Safety Report 24774616 (Version 2)
Quarter: 2025Q1

REPORT INFORMATION
  Report Type: Spontaneous
  Country: JP (occurrence: JP)
  Receive Date: 20241226
  Receipt Date: 20250101
  Transmission Date: 20250408
  Serious: No
  Sender: AMGEN
  Company Number: JP-KYOWAKIRIN-2024KK028237

PATIENT

DRUGS (2)
  1. PEGFILGRASTIM [Suspect]
     Active Substance: PEGFILGRASTIM
     Indication: Colony stimulating factor therapy
     Route: 058
  2. CABAZITAXEL [Suspect]
     Active Substance: CABAZITAXEL
     Indication: Neoplasm malignant
     Route: 065

REACTIONS (1)
  - No adverse event [Unknown]
